FAERS Safety Report 25833774 (Version 1)
Quarter: 2025Q3

REPORT INFORMATION
  Report Type: Spontaneous
  Country: US (occurrence: US)
  Receive Date: 20250923
  Receipt Date: 20250923
  Transmission Date: 20251020
  Serious: No
  Sender: SANOFI AVENTIS
  Company Number: US-SA-2025SA280747

PATIENT
  Sex: Male

DRUGS (5)
  1. DUPIXENT [Suspect]
     Active Substance: DUPILUMAB
     Indication: Asthma
     Dosage: 300 MG, QOW
     Route: 058
  2. ALBUTEROL SULFATE [Concomitant]
     Active Substance: ALBUTEROL SULFATE
  3. FAMOTIDINE [Concomitant]
     Active Substance: FAMOTIDINE
  4. TOPIRAMATE [Concomitant]
     Active Substance: TOPIRAMATE
  5. ZEPBOUND [Concomitant]
     Active Substance: TIRZEPATIDE

REACTIONS (4)
  - Cough [Unknown]
  - Flatulence [Unknown]
  - Diarrhoea [Unknown]
  - Incorrect dose administered [Unknown]
